FAERS Safety Report 16121832 (Version 1)
Quarter: 2019Q2

REPORT INFORMATION
  Report Type: Spontaneous
  Country: US (occurrence: US)
  Receive Date: 20190326
  Receipt Date: 20190326
  Transmission Date: 20190711
  Serious: Yes (Hospitalization)
  Sender: FDA-Public Use
  Company Number: None

PATIENT
  Sex: Female

DRUGS (14)
  1. HALOBETASOL [Concomitant]
     Active Substance: HALOBETASOL PROPIONATE
  2. TRAMADOL. [Concomitant]
     Active Substance: TRAMADOL
  3. CELEBREX [Concomitant]
     Active Substance: CELECOXIB
  4. OMEPRAZOLE. [Concomitant]
     Active Substance: OMEPRAZOLE
  5. VITAMIN C [Concomitant]
     Active Substance: ASCORBIC ACID
  6. HUMIRA [Suspect]
     Active Substance: ADALIMUMAB
     Indication: CROHN^S DISEASE
     Dosage: ?          OTHER FREQUENCY:Q2W;?
     Route: 058
     Dates: start: 20120302
  7. CALCIUM +D3 [Concomitant]
     Active Substance: CALCIUM\CHOLECALCIFEROL
  8. CYMBALTA [Concomitant]
     Active Substance: DULOXETINE HYDROCHLORIDE
  9. FLONASE [Concomitant]
     Active Substance: FLUTICASONE PROPIONATE
  10. IMODIUM [Concomitant]
     Active Substance: LOPERAMIDE HYDROCHLORIDE
  11. ASPIRIN 81 [Concomitant]
     Active Substance: ASPIRIN
  12. MULTI-VITAMIN/FL [Concomitant]
  13. TANDEM [Concomitant]
     Active Substance: FERROUS ASPARTO GLYCINATE\FERROUS FUMARATE
  14. MOTRIN [Concomitant]
     Active Substance: IBUPROFEN

REACTIONS (1)
  - Knee arthroplasty [None]
